FAERS Safety Report 24125246 (Version 1)
Quarter: 2024Q3

REPORT INFORMATION
  Report Type: Report from Study
  Country: BG (occurrence: BG)
  Receive Date: 20240723
  Receipt Date: 20240723
  Transmission Date: 20241016
  Serious: Yes (Hospitalization, Other)
  Sender: ABBVIE
  Company Number: BG-ABBVIE-5846360

PATIENT
  Age: 55 Year
  Sex: Male

DRUGS (4)
  1. RINVOQ [Suspect]
     Active Substance: UPADACITINIB
     Indication: Ankylosing spondylitis
     Route: 048
     Dates: start: 202208
  2. DICLOPRAM [Concomitant]
     Indication: Product used for unknown indication
  3. Urimil forte [Concomitant]
     Indication: Product used for unknown indication
  4. Mydocalm [Concomitant]
     Indication: Product used for unknown indication

REACTIONS (4)
  - Inflammatory marker increased [Unknown]
  - Musculoskeletal stiffness [Unknown]
  - Renal cyst [Unknown]
  - Spinal pain [Unknown]
